FAERS Safety Report 26145559 (Version 1)
Quarter: 2025Q4

REPORT INFORMATION
  Report Type: Spontaneous
  Country: US (occurrence: None)
  Receive Date: 20251210
  Receipt Date: 20251210
  Transmission Date: 20260117
  Serious: Yes (unspecified)
  Sender: FDA-CTU
  Company Number: None

PATIENT
  Age: 77 Year
  Sex: Male

DRUGS (4)
  1. IDOSE TR [Suspect]
     Active Substance: TRAVOPROST
     Indication: Glaucoma
     Dosage: 1 AMPLANT ONCE  OPHTHALMIC
     Route: 047
     Dates: start: 20250820
  2. VITAMINS [Concomitant]
     Active Substance: VITAMINS
  3. B12 [Concomitant]
  4. IRON [Concomitant]
     Active Substance: IRON

REACTIONS (4)
  - Dizziness [None]
  - Presyncope [None]
  - Ketosis [None]
  - Red blood cell count decreased [None]

NARRATIVE: CASE EVENT DATE: 20250820
